FAERS Safety Report 9527123 (Version 2)
Quarter: 2013Q4

REPORT INFORMATION
  Report Type: Spontaneous
  Country: DE (occurrence: DE)
  Receive Date: 20130916
  Receipt Date: 20131004
  Transmission Date: 20140711
  Serious: Yes (Death, Other)
  Sender: FDA-Public Use
  Company Number: DE-B.I. PHARMACEUTICALS,INC./RIDGEFIELD-2013-BI-28882DE

PATIENT
  Sex: Female
  Weight: 71 kg

DRUGS (3)
  1. PRADAXA [Suspect]
     Indication: ATRIAL FIBRILLATION
     Dosage: 300 MG
  2. METROPROLOL [Concomitant]
     Indication: ATRIAL FIBRILLATION
     Dosage: 47.5 MG
  3. CORDAREX [Concomitant]
     Indication: ATRIAL FIBRILLATION
     Dosage: 200 MG

REACTIONS (3)
  - Pulmonary embolism [Fatal]
  - Multi-organ failure [Fatal]
  - Acute respiratory distress syndrome [Fatal]
